FAERS Safety Report 9221601 (Version 1)
Quarter: 2013Q1

REPORT INFORMATION
  Report Type: Spontaneous
  Country: US (occurrence: None)
  Receive Date: 20120831
  Receipt Date: 20120831
  Transmission Date: 20140127
  Serious: No
  Sender: FDA-Public Use
  Company Number: 1000031516

PATIENT
  Age: 85 Year
  Sex: Female

DRUGS (5)
  1. DALIRESP [Suspect]
     Indication: CHRONIC OBSTRUCTIVE PULMONARY DISEASE
     Dosage: 1 N I
     Route: 048
     Dates: start: 20120512
  2. XANAX (ALPRAZOLAM)(ALPARAZOLAM) [Concomitant]
  3. DUONEB (IPRATROPIUM, ALBUTEROL)(IPRATROPIUM, ALBUTEROL) [Concomitant]
  4. SYNTHROID(LEVOTHYROXINE SODIUM)(LEVOTHYROXINE SODIUM) [Concomitant]
  5. BROVANA (ARFORMOTEROL TARTRATE)(ARFORMOTEROL TARTRATE) [Concomitant]

REACTIONS (7)
  - Fatigue [None]
  - Asthenia [None]
  - Sensation of heaviness [None]
  - Insomnia [None]
  - Decreased appetite [None]
  - Increased appetite [None]
  - Weight increased [None]
